FAERS Safety Report 9311887 (Version 1)
Quarter: 2013Q2

REPORT INFORMATION
  Report Type: Spontaneous
  Country: JP (occurrence: JP)
  Receive Date: 20130528
  Receipt Date: 20130528
  Transmission Date: 20140414
  Serious: Yes (Hospitalization, Other)
  Sender: FDA-Public Use
  Company Number: PHHY2013JP052943

PATIENT
  Age: 72 Year
  Sex: Female

DRUGS (5)
  1. FEMARA [Suspect]
     Dosage: UNK UKN, UNK
     Route: 048
  2. XELODA [Concomitant]
     Dosage: UNK UKN, UNK
  3. ENDOXAN [Concomitant]
     Dosage: UNK UKN, UNK
  4. HERCEPTIN [Concomitant]
     Dosage: UNK UKN, UNK
  5. FURTULON [Concomitant]
     Dosage: UNK UKN, UNK

REACTIONS (2)
  - Pericardial effusion [Unknown]
  - White blood cell count decreased [Unknown]
